FAERS Safety Report 4571986-X (Version None)
Quarter: 2005Q1

REPORT INFORMATION
  Report Type: 
  Country: None (occurrence: None)
  Receive Date: 20050202
  Receipt Date: 20050114
  Transmission Date: 20050727
  Serious: Yes (Hospitalization)
  Sender: FDA-Public Use
  Company Number: US_0501110934

PATIENT
  Age: 12 Year

DRUGS (1)
  1. STRATTERA [Suspect]
     Dosage: 40 MG/1 DAY

REACTIONS (3)
  - DELUSION [None]
  - MENTAL DISORDER [None]
  - PSYCHOTIC DISORDER [None]
